FAERS Safety Report 23569933 (Version 2)
Quarter: 2024Q4

REPORT INFORMATION
  Report Type: Other
  Country: US (occurrence: US)
  Receive Date: 20240227
  Receipt Date: 20241213
  Transmission Date: 20250114
  Serious: Yes (Death, Hospitalization, Other)
  Sender: SIGA TECHNOLOGIES, INC.
  Company Number: US-SIGA Technologies, Inc.-2153702

PATIENT
  Age: 69 Year
  Sex: Male

DRUGS (8)
  1. TPOXX [Suspect]
     Active Substance: TECOVIRIMAT
     Indication: Orthopox virus infection
     Dates: start: 20231208, end: 20231229
  2. BRINCIDOFOVIR [Suspect]
     Active Substance: BRINCIDOFOVIR
     Dates: start: 20231214, end: 20231221
  3. REMDESIVIR [Concomitant]
     Active Substance: REMDESIVIR
  4. LEVOFLOXACIN [Concomitant]
     Active Substance: LEVOFLOXACIN
  5. AZITHROMYCIN [Concomitant]
     Active Substance: AZITHROMYCIN
  6. CEFTRIAXONE [Concomitant]
     Active Substance: CEFTRIAXONE
  7. DOXYCYCLINE [Concomitant]
     Active Substance: DOXYCYCLINE
  8. VIGIV (immunoglobulin G human) [Concomitant]
     Dates: start: 20231208, end: 20231208

REACTIONS (4)
  - Disease progression [Fatal]
  - Disturbance in attention [Recovered/Resolved]
  - Chills [Recovered/Resolved]
  - Death [Fatal]

NARRATIVE: CASE EVENT DATE: 20231208
